FAERS Safety Report 6623095 (Version 4)
Quarter: 2020Q2

REPORT INFORMATION
  Report Type: Spontaneous
  Country: IN (occurrence: IN)
  Receive Date: 20080424
  Receipt Date: 20200406
  Transmission Date: 20200714
  Serious: Yes (Other)
  Sender: FDA-Public Use
  Company Number: PHBS2008IN04183

PATIENT
  Age: 31 Year
  Sex: Female

DRUGS (3)
  1. FOLIC ACID. [Concomitant]
     Active Substance: FOLIC ACID
     Indication: PRENATAL CARE
     Dosage: UNK
     Route: 065
  2. IMATINIB. [Suspect]
     Active Substance: IMATINIB MESYLATE
     Indication: CHRONIC MYELOID LEUKAEMIA
     Dosage: 400 MG, QD
     Route: 065
     Dates: start: 200306, end: 200404
  3. IRON SUPPLEMENTS [Concomitant]
     Active Substance: IRON
     Indication: PRENATAL CARE
     Dosage: UNK
     Route: 065

REACTIONS (4)
  - Amenorrhoea [Recovered/Resolved]
  - Premature labour [Recovered/Resolved]
  - Maternal exposure during pregnancy [Unknown]
  - Twin pregnancy [Recovered/Resolved]

NARRATIVE: CASE EVENT DATE: 200402
